FAERS Safety Report 17144176 (Version 10)
Quarter: 2020Q3

REPORT INFORMATION
  Report Type: Spontaneous
  Country: US (occurrence: US)
  Receive Date: 20191212
  Receipt Date: 20200804
  Transmission Date: 20201102
  Serious: Yes (Other)
  Sender: FDA-Public Use
  Company Number: US-PFIZER INC-2019534579

PATIENT
  Age: 50 Year
  Sex: Female
  Weight: 84.37 kg

DRUGS (4)
  1. FLECTOR [Suspect]
     Active Substance: DICLOFENAC EPOLAMINE
     Indication: FLANK PAIN
  2. LYRICA [Concomitant]
     Active Substance: PREGABALIN
     Dosage: UNK
  3. PROVIGIL [Concomitant]
     Active Substance: MODAFINIL
     Dosage: UNK
  4. FLECTOR [Suspect]
     Active Substance: DICLOFENAC EPOLAMINE
     Indication: PLANTAR FASCIITIS
     Dosage: 1 PATCH, TWO TIMES DAILY (TO CHANGE OUT EVERY 12 HOURS)
     Route: 062
     Dates: start: 201902

REACTIONS (4)
  - Craniocerebral injury [Unknown]
  - Mental impairment [Unknown]
  - Wrong technique in product usage process [Unknown]
  - Illness [Unknown]
